FAERS Safety Report 13082612 (Version 1)
Quarter: 2017Q1

REPORT INFORMATION
  Report Type: Spontaneous
  Country: US (occurrence: US)
  Receive Date: 20170103
  Receipt Date: 20170103
  Transmission Date: 20170428
  Serious: Yes (Hospitalization)
  Sender: FDA-Public Use
  Company Number: US-RELYPSA-RLY2016004576

PATIENT
  Sex: Female

DRUGS (14)
  1. BISACODYL. [Concomitant]
     Active Substance: BISACODYL
  2. METOPROLOL TARTRATE. [Concomitant]
     Active Substance: METOPROLOL TARTRATE
  3. OMEPRAZOLE. [Concomitant]
     Active Substance: OMEPRAZOLE
  4. DOCUSATE SODIUM. [Concomitant]
     Active Substance: DOCUSATE SODIUM
  5. GLIPIZIDE. [Concomitant]
     Active Substance: GLIPIZIDE
  6. VELTASSA [Suspect]
     Active Substance: PATIROMER
     Indication: RENAL TRANSPLANT
     Dosage: 8.4 G, QD
     Route: 048
     Dates: start: 20161126, end: 2016
  7. HUMALOG [Concomitant]
     Active Substance: INSULIN LISPRO
  8. SODIUM BICARBONATE. [Concomitant]
     Active Substance: SODIUM BICARBONATE
  9. CELLCEPT [Concomitant]
     Active Substance: MYCOPHENOLATE MOFETIL\MYCOPHENOLATE MOFETIL HYDROCHLORIDE
  10. CIPROFLOXACIN HCL [Concomitant]
     Active Substance: CIPROFLOXACIN HYDROCHLORIDE
  11. LEVEMIR [Concomitant]
     Active Substance: INSULIN DETEMIR
  12. PROGRAF [Concomitant]
     Active Substance: TACROLIMUS\TACROLIMUS ANHYDROUS
  13. PREDNISONE. [Concomitant]
     Active Substance: PREDNISONE
  14. SIMVASTATIN. [Concomitant]
     Active Substance: SIMVASTATIN

REACTIONS (1)
  - Hospitalisation [Not Recovered/Not Resolved]
